FAERS Safety Report 23587528 (Version 1)
Quarter: 2024Q1

REPORT INFORMATION
  Report Type: Report from Study
  Country: US (occurrence: US)
  Receive Date: 20240301
  Receipt Date: 20240301
  Transmission Date: 20240409
  Serious: Yes (Other)
  Sender: FDA-Public Use
  Company Number: US-ABBVIE-5658486

PATIENT
  Age: 23 Year
  Sex: Male

DRUGS (1)
  1. HUMIRA [Suspect]
     Active Substance: ADALIMUMAB
     Indication: Psoriatic arthropathy
     Route: 058
     Dates: start: 20180202

REACTIONS (4)
  - Appendix disorder [Unknown]
  - Pain in extremity [Unknown]
  - Rash papular [Unknown]
  - Localised infection [Unknown]

NARRATIVE: CASE EVENT DATE: 20240131
